FAERS Safety Report 25358742 (Version 4)
Quarter: 2025Q3

REPORT INFORMATION
  Report Type: Spontaneous
  Country: JP (occurrence: JP)
  Receive Date: 20250526
  Receipt Date: 20250707
  Transmission Date: 20251020
  Serious: Yes (Other)
  Sender: ELI LILLY AND COMPANY
  Company Number: JP-ELI_LILLY_AND_COMPANY-JP202505013481AA

PATIENT
  Age: 71 Year
  Sex: Male

DRUGS (1)
  1. OMVOH [Suspect]
     Active Substance: MIRIKIZUMAB-MRKZ
     Indication: Product used for unknown indication
     Route: 065
     Dates: start: 20241120

REACTIONS (2)
  - Atrial fibrillation [Recovered/Resolved]
  - Spinal osteoarthritis [Unknown]

NARRATIVE: CASE EVENT DATE: 20250604
